FAERS Safety Report 8509844-8 (Version None)
Quarter: 2012Q3

REPORT INFORMATION
  Report Type: 
  Country: None (occurrence: None)
  Receive Date: 20120713
  Receipt Date: 20120709
  Transmission Date: 20120928
  Serious: Yes (Death, Hospitalization, Other)
  Sender: FDA-Public Use
  Company Number: US-009507513-2011SP053027

PATIENT

DRUGS (1)
  1. NUVARING [Suspect]
     Indication: DYSMENORRHOEA
     Dosage: UNK
     Route: 067
     Dates: start: 20090101, end: 20091109

REACTIONS (6)
  - HYPERTENSION [None]
  - PULMONARY EMBOLISM [None]
  - OFF LABEL USE [None]
  - LIGAMENT OPERATION [None]
  - DEEP VEIN THROMBOSIS [None]
  - TRICUSPID VALVE INCOMPETENCE [None]
